FAERS Safety Report 7821786-X (Version None)
Quarter: 2011Q4

REPORT INFORMATION
  Report Type: 
  Country: None (occurrence: None)
  Receive Date: 20111018
  Receipt Date: 20101208
  Transmission Date: 20120403
  Serious: No
  Sender: FDA-Public Use
  Company Number: US-ASTRAZENECA-2010SE58213

PATIENT
  Age: 59 Year
  Sex: Female
  Weight: 99.8 kg

DRUGS (9)
  1. POTASSIUM [Concomitant]
  2. ALBUTEROL [Concomitant]
  3. SYMBICORT [Suspect]
     Indication: ASTHMA
     Dosage: 2 PUFFS DAILY
     Route: 055
  4. EYE VITAMIN [Concomitant]
  5. PRISTIQ [Concomitant]
  6. RANITIDINE [Concomitant]
  7. M.V.I. [Concomitant]
  8. HYDROCHLOROTHIAZIDE [Concomitant]
  9. FLUTICASONE PROPRIANATE [Concomitant]

REACTIONS (4)
  - PRODUCTIVE COUGH [None]
  - WHEEZING [None]
  - COUGH [None]
  - INCORRECT DOSE ADMINISTERED [None]
